FAERS Safety Report 14788744 (Version 1)
Quarter: 2018Q2

REPORT INFORMATION
  Report Type: Spontaneous
  Country: GB (occurrence: GB)
  Receive Date: 20180423
  Receipt Date: 20180423
  Transmission Date: 20180711
  Serious: Yes (Death, Other)
  Sender: FDA-Public Use
  Company Number: GB-ACCORD-065830

PATIENT
  Age: 29 Year
  Sex: Female

DRUGS (3)
  1. PREGABALIN. [Suspect]
     Active Substance: PREGABALIN
     Indication: PRODUCT USED FOR UNKNOWN INDICATION
     Dosage: UNK
     Route: 065
  2. SERTRALINE [Suspect]
     Active Substance: SERTRALINE HYDROCHLORIDE
     Indication: PRODUCT USED FOR UNKNOWN INDICATION
     Dosage: UNK
     Route: 065
  3. DIAZEPAM. [Suspect]
     Active Substance: DIAZEPAM
     Indication: PRODUCT USED FOR UNKNOWN INDICATION
     Dosage: UNK
     Route: 065

REACTIONS (9)
  - Suicidal behaviour [Unknown]
  - Hallucination, auditory [Unknown]
  - Somnolence [Unknown]
  - Sudden death [Fatal]
  - Mental disorder [Unknown]
  - Mental impairment [Not Recovered/Not Resolved]
  - Tinnitus [Unknown]
  - Hypersomnia [Unknown]
  - Borderline personality disorder [Unknown]

NARRATIVE: CASE EVENT DATE: 20170917
